FAERS Safety Report 14569429 (Version 1)
Quarter: 2018Q1

REPORT INFORMATION
  Report Type: Spontaneous
  Country: NL (occurrence: NL)
  Receive Date: 20180223
  Receipt Date: 20180223
  Transmission Date: 20180509
  Serious: Yes (Hospitalization, Other)
  Sender: FDA-Public Use
  Company Number: NL-B.I. PHARMACEUTICALS,INC./RIDGEFIELD-2018-12-000696

PATIENT
  Age: 36 Year
  Sex: Female

DRUGS (1)
  1. NEVIRAPINE. [Suspect]
     Active Substance: NEVIRAPINE
     Indication: HIV INFECTION
     Dosage: UNK
     Route: 065
     Dates: start: 20050101

REACTIONS (14)
  - Lip erosion [Recovering/Resolving]
  - Angina bullosa haemorrhagica [Unknown]
  - Pyrexia [Recovering/Resolving]
  - Vulvovaginal pain [Recovering/Resolving]
  - Headache [Recovering/Resolving]
  - Papule [Recovering/Resolving]
  - Oral mucosa erosion [Recovering/Resolving]
  - Stevens-Johnson syndrome [Recovering/Resolving]
  - Eye pain [Recovering/Resolving]
  - Conjunctival hyperaemia [Recovering/Resolving]
  - Ocular hyperaemia [Recovering/Resolving]
  - Vaginal discharge [Recovering/Resolving]
  - Photophobia [Recovering/Resolving]
  - Mucous membrane disorder [Recovering/Resolving]
